FAERS Safety Report 4715829-X (Version None)
Quarter: 2005Q3

REPORT INFORMATION
  Report Type: 
  Country: None (occurrence: None)
  Receive Date: 20050718
  Receipt Date: 20050712
  Transmission Date: 20060218
  Serious: Yes (Hospitalization)
  Sender: FDA-Public Use
  Company Number: 2005SE04049

PATIENT
  Age: 6036 Day
  Sex: Female

DRUGS (2)
  1. SEROQUEL [Suspect]
     Indication: CONVERSION DISORDER
     Route: 048
     Dates: start: 20040101, end: 20050610
  2. LEVOZIN [Concomitant]
     Indication: CONVERSION DISORDER
     Dosage: DAILY DOSE 0-100 MG (25 MG WHEN NEEDED)
     Route: 048
     Dates: start: 20040101, end: 20050610

REACTIONS (3)
  - DIET REFUSAL [None]
  - LEUKOPENIA [None]
  - WEIGHT DECREASED [None]
